FAERS Safety Report 11370175 (Version 1)
Quarter: 2015Q3

REPORT INFORMATION
  Report Type: Spontaneous
  Country: US (occurrence: US)
  Receive Date: 20150812
  Receipt Date: 20150812
  Transmission Date: 20151125
  Serious: Yes (Other)
  Sender: FDA-Public Use
  Company Number: US-SHIRE-US201509697

PATIENT
  Sex: Male
  Weight: 136.5 kg

DRUGS (2)
  1. LIALDA [Suspect]
     Active Substance: MESALAMINE
     Indication: PRODUCT USED FOR UNKNOWN INDICATION
     Dosage: 25 MG, 2X/DAY:BID
     Route: 048
     Dates: start: 2015
  2. LIALDA [Suspect]
     Active Substance: MESALAMINE
     Dosage: 25 MG, 2X/DAY:BID
     Route: 048

REACTIONS (4)
  - Inappropriate schedule of drug administration [Not Recovered/Not Resolved]
  - Haematochezia [Recovered/Resolved]
  - Pain [Recovered/Resolved]
  - Faeces soft [Recovered/Resolved]

NARRATIVE: CASE EVENT DATE: 2015
